FAERS Safety Report 7720041-6 (Version None)
Quarter: 2011Q3

REPORT INFORMATION
  Report Type: 
  Country: None (occurrence: None)
  Receive Date: 20110831
  Receipt Date: 20110823
  Transmission Date: 20111222
  Serious: No
  Sender: FDA-Public Use
  Company Number: US-BIOGENIDEC-2011BI032148

PATIENT
  Age: 44 Year
  Sex: Female

DRUGS (2)
  1. GABAPENTIN [Concomitant]
     Indication: NERVE INJURY
  2. AVONEX [Suspect]
     Indication: MULTIPLE SCLEROSIS
     Route: 030
     Dates: start: 20110822

REACTIONS (5)
  - HYPOAESTHESIA [None]
  - HEART RATE INCREASED [None]
  - CHEST PAIN [None]
  - HEADACHE [None]
  - PAIN [None]
